FAERS Safety Report 17018145 (Version 1)
Quarter: 2019Q4

REPORT INFORMATION
  Report Type: Spontaneous
  Country: US (occurrence: US)
  Receive Date: 20191007
  Receipt Date: 20191007
  Transmission Date: 20200122
  Serious: Yes (Hospitalization)
  Sender: FDA-Public Use
  Company Number: None

PATIENT
  Age: 19 Year
  Sex: Female

DRUGS (1)
  1. BENLYSTA [Suspect]
     Active Substance: BELIMUMAB
     Indication: OSTEOARTHRITIS
     Dates: start: 20190725

REACTIONS (2)
  - Mouth ulceration [None]
  - Osteoarthritis [None]

NARRATIVE: CASE EVENT DATE: 20190927
